FAERS Safety Report 17413041 (Version 1)
Quarter: 2020Q1

REPORT INFORMATION
  Report Type: Spontaneous
  Country: US (occurrence: US)
  Receive Date: 20200212
  Receipt Date: 20200212
  Transmission Date: 20200409
  Serious: Yes (Death, Hospitalization)
  Sender: FDA-Public Use
  Company Number: None

PATIENT
  Sex: Female
  Weight: 54 kg

DRUGS (3)
  1. METOPROLOL. [Concomitant]
     Active Substance: METOPROLOL
     Dates: start: 20140401, end: 20190420
  2. HYDROXYCHLOROQUINE [Concomitant]
     Active Substance: HYDROXYCHLOROQUINE
     Dates: start: 20090101, end: 20190420
  3. CIPROFLOXICIN [Suspect]
     Active Substance: CIPROFLOXACIN
     Indication: INFECTED SKIN ULCER
     Route: 048

REACTIONS (5)
  - Sleep disorder [None]
  - Restlessness [None]
  - Hallucination, auditory [None]
  - Initial insomnia [None]
  - Impaired healing [None]
